FAERS Safety Report 10224249 (Version 1)
Quarter: 2014Q2

REPORT INFORMATION
  Report Type: Spontaneous
  Country: MY (occurrence: MY)
  Receive Date: 20140609
  Receipt Date: 20140609
  Transmission Date: 20141212
  Serious: Yes (Other)
  Sender: FDA-Public Use
  Company Number: MY-SA-2014SA071551

PATIENT
  Age: 59 Year
  Sex: Female

DRUGS (8)
  1. ARAVA [Suspect]
     Indication: RHEUMATOID ARTHRITIS
     Route: 048
     Dates: start: 2012
  2. TELMISARTAN [Concomitant]
  3. ATENOLOL [Concomitant]
  4. METHOTREXATE [Concomitant]
  5. ETORICOXIB [Concomitant]
  6. OMEPRAZOLE [Concomitant]
  7. CALCIUM LACTATE [Concomitant]
  8. CALCITRIOL [Concomitant]

REACTIONS (1)
  - Malignant hypertension [Not Recovered/Not Resolved]
